FAERS Safety Report 24987531 (Version 1)
Quarter: 2025Q1

REPORT INFORMATION
  Report Type: Spontaneous
  Country: IL (occurrence: IL)
  Receive Date: 20250219
  Receipt Date: 20250219
  Transmission Date: 20250409
  Serious: Yes (Life-Threatening)
  Sender: PFIZER
  Company Number: IL-PFIZER INC-PV202500019085

PATIENT
  Age: 76 Year
  Sex: Female

DRUGS (1)
  1. CLINDAMYCIN PHOSPHATE [Suspect]
     Active Substance: CLINDAMYCIN PHOSPHATE

REACTIONS (9)
  - Skin lesion [Unknown]
  - Pruritus [Unknown]
  - Chest pain [Unknown]
  - Burning sensation [Unknown]
  - Wound complication [Unknown]
  - Oral pain [Unknown]
  - Oropharyngeal pain [Unknown]
  - Dysphagia [Unknown]
  - Cough [Unknown]
